FAERS Safety Report 17263934 (Version 4)
Quarter: 2020Q2

REPORT INFORMATION
  Report Type: Spontaneous
  Country: PT (occurrence: PT)
  Receive Date: 20200113
  Receipt Date: 20200506
  Transmission Date: 20200713
  Serious: Yes (Disabling)
  Sender: FDA-Public Use
  Company Number: PT-MYLANLABS-2020M1002903

PATIENT
  Age: 85 Year
  Sex: Female

DRUGS (6)
  1. EZETIMIBE. [Suspect]
     Active Substance: EZETIMIBE
     Dosage: (FOI-LHE PRESCRITO 10MG/1XDIA A NOITE, MAS A DOENTE TOMAVA APENAS 2X SEMANA COM MEDO DAS RAMS)
     Route: 048
  2. HYGROTON [Concomitant]
     Active Substance: CHLORTHALIDONE
     Indication: PRODUCT USED FOR UNKNOWN INDICATION
     Dosage: TOMA MEIO COMPRIMIDO
     Route: 048
  3. CILESTODERME [Concomitant]
     Indication: ERYTHEMA
     Dosage: UNK
     Route: 065
  4. FENERGAN                           /00033001/ [Concomitant]
     Active Substance: PROMETHAZINE HYDROCHLORIDE
     Indication: URTICARIA
     Dosage: UNK
     Route: 061
  5. XALATAN [Concomitant]
     Active Substance: LATANOPROST
     Indication: GLAUCOMA
     Dosage: UNK
     Route: 047
  6. EZETIMIBE. [Suspect]
     Active Substance: EZETIMIBE
     Indication: HYPERCHOLESTEROLAEMIA
     Dosage: 10 MILLIGRAM, QD(FOI LHE PRESCRITO 10MG/1XDIA NOITE, MAS A DOENTE TOMAVA APENAS 2X SEMANA COM)
     Route: 048
     Dates: end: 20191008

REACTIONS (6)
  - Myalgia [Not Recovered/Not Resolved]
  - Rash macular [Not Recovered/Not Resolved]
  - Joint swelling [Not Recovered/Not Resolved]
  - Erythema [Not Recovered/Not Resolved]
  - Malaise [Not Recovered/Not Resolved]
  - Pruritus [Not Recovered/Not Resolved]
